FAERS Safety Report 5239977-3 (Version None)
Quarter: 2007Q1

REPORT INFORMATION
  Report Type: 
  Country: None (occurrence: None)
  Receive Date: 20070216
  Receipt Date: 20070201
  Transmission Date: 20070707
  Serious: Yes (Hospitalization, Other)
  Sender: FDA-Public Use
  Company Number: US-AMGEN-STX209419

PATIENT
  Sex: Male

DRUGS (7)
  1. ENBREL [Suspect]
     Indication: RHEUMATOID ARTHRITIS
     Route: 030
     Dates: start: 19990813
  2. ENBREL [Suspect]
     Route: 030
  3. LOPRESSOR [Concomitant]
  4. MEDROL [Concomitant]
  5. DYAZIDE [Concomitant]
  6. ASPIRIN [Concomitant]
  7. VOLTAREN [Concomitant]
     Dates: start: 20000418

REACTIONS (7)
  - ACUTE MYOCARDIAL INFARCTION [None]
  - ANGINA PECTORIS [None]
  - CARDIO-RESPIRATORY ARREST [None]
  - MUSCULOSKELETAL STIFFNESS [None]
  - PAIN [None]
  - SINUSITIS [None]
  - STAPHYLOCOCCAL SEPSIS [None]
